FAERS Safety Report 15996327 (Version 1)
Quarter: 2019Q1

REPORT INFORMATION
  Report Type: Spontaneous
  Country: BR (occurrence: BR)
  Receive Date: 20190222
  Receipt Date: 20190222
  Transmission Date: 20190418
  Serious: Yes (Hospitalization)
  Sender: FDA-Public Use
  Company Number: BR-US WORLDMEDS, LLC-USW201902-000373

PATIENT
  Age: 35 Year
  Sex: Female
  Weight: 56 kg

DRUGS (1)
  1. TEGASEROD [Suspect]
     Active Substance: TEGASEROD
     Route: 048
     Dates: start: 2014, end: 201901

REACTIONS (3)
  - Dyschezia [Recovering/Resolving]
  - Intestinal operation [Unknown]
  - Intestinal operation [Unknown]

NARRATIVE: CASE EVENT DATE: 20170612
